FAERS Safety Report 23876565 (Version 1)
Quarter: 2024Q2

REPORT INFORMATION
  Report Type: Spontaneous
  Country: AT (occurrence: None)
  Receive Date: 20240521
  Receipt Date: 20240521
  Transmission Date: 20240716
  Serious: Yes (Hospitalization)
  Sender: FDA-Public Use
  Company Number: AT-ROCHE-3563024

PATIENT
  Age: 65 Year
  Sex: Male

DRUGS (5)
  1. AVASTIN [Suspect]
     Active Substance: BEVACIZUMAB
     Indication: Diabetic retinal oedema
     Route: 065
  2. VABYSMO [Suspect]
     Active Substance: FARICIMAB\FARICIMAB-SVOA
     Indication: Diabetic retinal oedema
     Route: 065
     Dates: start: 202307, end: 202311
  3. EYLEA [Concomitant]
     Active Substance: AFLIBERCEPT
     Route: 050
  4. OZURDEX [Concomitant]
     Active Substance: DEXAMETHASONE
     Route: 050
  5. TRIAMCINOLONE [Concomitant]
     Active Substance: TRIAMCINOLONE
     Route: 050

REACTIONS (3)
  - Toxic anterior segment syndrome [Unknown]
  - Cystoid macular oedema [Unknown]
  - Iridocyclitis [Unknown]
